FAERS Safety Report 10071301 (Version 3)
Quarter: 2014Q2

REPORT INFORMATION
  Report Type: Spontaneous
  Country: US (occurrence: US)
  Receive Date: 20140410
  Receipt Date: 20140501
  Transmission Date: 20141212
  Serious: No
  Sender: FDA-Public Use
  Company Number: US-PFIZER INC-2014097304

PATIENT
  Age: 60 Year
  Sex: Female

DRUGS (12)
  1. XELJANZ [Suspect]
     Indication: RHEUMATOID ARTHRITIS
     Dosage: 5 MG, 2X/DAY
     Route: 048
     Dates: start: 201402
  2. METHOTREXATE [Suspect]
     Dosage: UNK
  3. PERCOCET [Concomitant]
     Dosage: OXYCODONE HYDROCHLORIDE 5/ PARACETAMOL 325, UNK
  4. COZAAR [Concomitant]
     Dosage: UNK
  5. FENTANYL [Concomitant]
     Dosage: UNK
  6. FOLIC ACID [Concomitant]
     Dosage: UNK
  7. ZETIA [Concomitant]
     Dosage: UNK
  8. VITAMIN C [Concomitant]
     Dosage: UNK
  9. BIOTIN [Concomitant]
     Dosage: UNK
  10. VITAMIN B12 [Concomitant]
     Dosage: UNK
  11. OMEGA 3 PLUS [Concomitant]
     Dosage: UNK
  12. MAGNESIUM [Concomitant]
     Dosage: UNK

REACTIONS (1)
  - Alopecia [Not Recovered/Not Resolved]
